FAERS Safety Report 22233476 (Version 1)
Quarter: 2023Q2

REPORT INFORMATION
  Report Type: Report from Study
  Country: US (occurrence: US)
  Receive Date: 20230420
  Receipt Date: 20230420
  Transmission Date: 20230721
  Serious: Yes (Hospitalization, Other)
  Sender: FDA-Public Use
  Company Number: US-PFIZER INC-PV202300070207

PATIENT
  Age: 55 Year
  Sex: Female

DRUGS (14)
  1. CEFEPIME HYDROCHLORIDE [Suspect]
     Active Substance: CEFEPIME HYDROCHLORIDE
     Dosage: UNK
     Route: 042
     Dates: start: 202302
  2. NUZYRA [Suspect]
     Active Substance: OMADACYCLINE
     Indication: Atypical mycobacterial lower respiratory tract infection
     Dosage: 150 MG (LOADING DOSE)
     Route: 048
     Dates: start: 20220408
  3. NUZYRA [Suspect]
     Active Substance: OMADACYCLINE
     Indication: Mycobacterium avium complex infection
     Dosage: 300 MG, DAILY (MAINTENANCE DOSE)
  4. AMLODIPINE [Concomitant]
     Active Substance: AMLODIPINE BESYLATE
     Dosage: UNK
  5. TRAZODONE [Concomitant]
     Active Substance: TRAZODONE HYDROCHLORIDE
     Dosage: UNK
  6. DULOXETINE [Concomitant]
     Active Substance: DULOXETINE
     Dosage: UNK
  7. ETHAMBUTOL [Concomitant]
     Active Substance: ETHAMBUTOL HYDROCHLORIDE
     Dosage: UNK
  8. BACLOFEN [Concomitant]
     Active Substance: BACLOFEN
     Dosage: UNK
  9. TRULANCE [Concomitant]
     Active Substance: PLECANATIDE
     Dosage: UNK
  10. VITAMIN B6 [Concomitant]
     Active Substance: PYRIDOXINE HYDROCHLORIDE
     Dosage: 100 MG, DAILY (EVERY NIGHT)
  11. ALBUTEROL [Concomitant]
     Active Substance: ALBUTEROL
     Dosage: UNK
  12. LEVALBUTEROL HYDROCHLORIDE [Concomitant]
     Active Substance: LEVALBUTEROL HYDROCHLORIDE
     Dosage: UNK
  13. SODIUM CHLORIDE [Concomitant]
     Active Substance: SODIUM CHLORIDE
     Dosage: UNK
  14. AZITHROMYCIN [Concomitant]
     Active Substance: AZITHROMYCIN
     Dosage: UNK

REACTIONS (7)
  - Clostridium difficile infection [Recovered/Resolved]
  - Diarrhoea [Unknown]
  - Abdominal pain [Unknown]
  - Abdominal distension [Recovering/Resolving]
  - Abdominal pain upper [Unknown]
  - White blood cell count increased [Unknown]
  - Pseudomonas infection [Unknown]

NARRATIVE: CASE EVENT DATE: 20230101
